FAERS Safety Report 8552773-4 (Version None)
Quarter: 2012Q3

REPORT INFORMATION
  Report Type: 
  Country: None (occurrence: None)
  Receive Date: 20120731
  Receipt Date: 20120725
  Transmission Date: 20120928
  Serious: Yes (Other)
  Sender: FDA-Public Use
  Company Number: PHHY2012MX065194

PATIENT
  Sex: Female

DRUGS (1)
  1. ZOLEDRONOC ACID [Suspect]
     Indication: OSTEOPOROSIS
     Dosage: 5 MG, YEARLY
     Route: 042
     Dates: start: 20091028

REACTIONS (6)
  - IMPAIRED HEALING [None]
  - PAIN IN EXTREMITY [None]
  - DEPRESSION [None]
  - SOMNOLENCE [None]
  - VARICOSE ULCERATION [None]
  - FALL [None]
